FAERS Safety Report 9019325 (Version 3)
Quarter: 2013Q2

REPORT INFORMATION
  Report Type: Spontaneous
  Country: FR (occurrence: FR)
  Receive Date: 20130118
  Receipt Date: 20130624
  Transmission Date: 20140414
  Serious: Yes (Death, Hospitalization)
  Sender: FDA-Public Use
  Company Number: FR-B.I. PHARMACEUTICALS,INC./RIDGEFIELD-2013-FF-00102FF

PATIENT
  Age: 89 Year
  Sex: Female
  Weight: 75 kg

DRUGS (5)
  1. PRADAXA [Suspect]
     Indication: ATRIAL FIBRILLATION
     Dosage: 220 MG
     Route: 048
     Dates: end: 20121212
  2. AMIODARONE [Concomitant]
     Route: 048
     Dates: end: 20121214
  3. NEBIVOLOL [Concomitant]
     Dosage: 1/4 TABLET DAILY
     Route: 048
     Dates: end: 20121214
  4. FUROSEMIDE [Concomitant]
     Dosage: 40 MG
     Route: 048
     Dates: end: 20121214
  5. DUROGESIC [Concomitant]
     Dosage: 12MCG/H, EVERY 72H
     Route: 062
     Dates: end: 20121214

REACTIONS (4)
  - Renal failure acute [Fatal]
  - Generalised oedema [Fatal]
  - Melaena [Fatal]
  - Rectal haemorrhage [Fatal]
